FAERS Safety Report 7679143-5 (Version None)
Quarter: 2011Q3

REPORT INFORMATION
  Report Type: 
  Country: None (occurrence: None)
  Receive Date: 20110812
  Receipt Date: 20110729
  Transmission Date: 20111222
  Serious: Yes (Hospitalization)
  Sender: FDA-Public Use
  Company Number: US-ELI_LILLY_AND_COMPANY-US201101003911

PATIENT
  Sex: Female
  Weight: 108 kg

DRUGS (13)
  1. FORTEO [Suspect]
     Dosage: 20 UG, QD
     Route: 058
  2. LYRICA [Concomitant]
     Indication: NEURALGIA
  3. FORTEO [Suspect]
     Dosage: 20 UG, DAILY (1/D)
     Route: 058
  4. CALCIUM CARBONATE [Concomitant]
     Indication: COW'S MILK INTOLERANCE
  5. LIPITOR [Concomitant]
  6. FORTEO [Suspect]
     Indication: OSTEOPOROSIS
     Dosage: 20 UG, DAILY (1/D)
     Route: 058
     Dates: start: 20101001
  7. CRESTOR [Concomitant]
  8. TRAMADOL HCL [Concomitant]
  9. COD LIVER OIL [Concomitant]
  10. VITAMIN D [Concomitant]
  11. FORTEO [Suspect]
     Dosage: 20 UG, QD
     Route: 058
  12. MULTI-VITAMIN [Concomitant]
  13. FISH OIL [Concomitant]

REACTIONS (17)
  - HALLUCINATION [None]
  - MUSCULOSKELETAL DISCOMFORT [None]
  - SPINAL COLUMN STENOSIS [None]
  - RADICULOPATHY [None]
  - MUSCULAR WEAKNESS [None]
  - ASTHENIA [None]
  - CONSTIPATION [None]
  - PAIN IN EXTREMITY [None]
  - BACK DISORDER [None]
  - EXOSTOSIS [None]
  - SCIATIC NERVE INJURY [None]
  - ARTHRALGIA [None]
  - MUSCLE SPASMS [None]
  - INJECTION SITE HAEMATOMA [None]
  - HYPOAESTHESIA [None]
  - GLYCOSYLATED HAEMOGLOBIN INCREASED [None]
  - SPINAL CLAUDICATION [None]
